FAERS Safety Report 5781345-X (Version None)
Quarter: 2008Q2

REPORT INFORMATION
  Report Type: 
  Country: None (occurrence: None)
  Receive Date: 20080619
  Receipt Date: 20080610
  Transmission Date: 20081010
  Serious: Yes (Other)
  Sender: FDA-Public Use
  Company Number: 2008015099

PATIENT
  Age: 24 Year
  Sex: Female
  Weight: 77.1 kg

DRUGS (1)
  1. BENADRYL [Suspect]
     Indication: SLEEP DISORDER
     Dosage: 2 CAPSULES DAILY AT NIGHT, ORAL
     Route: 048
     Dates: start: 20080527

REACTIONS (9)
  - ASTHENIA [None]
  - BLOOD PRESSURE INCREASED [None]
  - DRY THROAT [None]
  - DYSKINESIA [None]
  - HEART RATE INCREASED [None]
  - INSOMNIA [None]
  - MEMORY IMPAIRMENT [None]
  - PYREXIA [None]
  - SPEECH DISORDER [None]
